FAERS Safety Report 5987260-0 (Version None)
Quarter: 2008Q4

REPORT INFORMATION
  Report Type: 
  Country: None (occurrence: None)
  Receive Date: 20081203
  Receipt Date: 20081126
  Transmission Date: 20090506
  Serious: Yes (Hospitalization)
  Sender: FDA-Public Use
  Company Number: CHNY2008NZ04280

PATIENT
  Sex: Female

DRUGS (1)
  1. HABITROL [Suspect]
     Dosage: 21 MG, QD2SDO, TRANSDERMAL
     Route: 062
     Dates: start: 20081126, end: 20081126

REACTIONS (2)
  - APPENDICITIS [None]
  - INTENTIONAL OVERDOSE [None]
